FAERS Safety Report 11309500 (Version 1)
Quarter: 2015Q3

REPORT INFORMATION
  Report Type: Report from Study
  Country: FR (occurrence: FR)
  Receive Date: 20150724
  Receipt Date: 20150724
  Transmission Date: 20151125
  Serious: Yes (Hospitalization, Other)
  Sender: FDA-Public Use
  Company Number: FR-GLAXOSMITHKLINE-FR2015GSK106084

PATIENT
  Age: 50 Year
  Sex: Male

DRUGS (8)
  1. OMEGA-3-ACID ETHYL ESTERS. [Suspect]
     Active Substance: OMEGA-3-ACID ETHYL ESTERS
     Indication: ISCHAEMIC HEART DISEASE PROPHYLAXIS
     Dosage: UNK
     Dates: start: 20080429, end: 20131015
  2. ELISOR [Concomitant]
     Active Substance: PRAVASTATIN SODIUM
  3. HEPARIN [Concomitant]
     Active Substance: HEPARIN SODIUM
  4. CARDENSIEL [Concomitant]
     Active Substance: BISOPROLOL FUMARATE
  5. COVERSYL [Concomitant]
     Active Substance: PERINDOPRIL
  6. UMULINE [Concomitant]
     Active Substance: INSULIN HUMAN
  7. KARDEGIC [Concomitant]
     Active Substance: ASPIRIN LYSINE
  8. PLAVIX [Concomitant]
     Active Substance: CLOPIDOGREL BISULFATE

REACTIONS (1)
  - Diabetes mellitus [Unknown]

NARRATIVE: CASE EVENT DATE: 20090105
